FAERS Safety Report 11263660 (Version 4)
Quarter: 2016Q2

REPORT INFORMATION
  Report Type: Report from Study
  Country: JP (occurrence: JP)
  Receive Date: 20150713
  Receipt Date: 20160418
  Transmission Date: 20160815
  Serious: Yes (Other)
  Sender: FDA-Public Use
  Company Number: JP-ROCHE-1605526

PATIENT

DRUGS (3)
  1. BEVACIZUMAB [Suspect]
     Active Substance: BEVACIZUMAB
     Indication: NON-SMALL CELL LUNG CANCER
     Route: 065
  2. TS-1 [Suspect]
     Active Substance: GIMERACIL\OTERACIL\TEGAFUR
     Indication: NON-SMALL CELL LUNG CANCER
     Route: 048
  3. DOCETAXEL. [Suspect]
     Active Substance: DOCETAXEL
     Indication: NON-SMALL CELL LUNG CANCER
     Route: 065

REACTIONS (19)
  - Neutropenia [Unknown]
  - Vomiting [Unknown]
  - Proteinuria [Unknown]
  - Aspartate aminotransferase increased [Unknown]
  - Leukopenia [Unknown]
  - Infection [Unknown]
  - Diarrhoea [Unknown]
  - Hyponatraemia [Unknown]
  - Fatigue [Unknown]
  - Blood bilirubin increased [Unknown]
  - Anaemia [Unknown]
  - Nausea [Unknown]
  - Constipation [Unknown]
  - Hyperkalaemia [Unknown]
  - Febrile neutropenia [Unknown]
  - Pulmonary haemorrhage [Unknown]
  - Haemorrhage [Unknown]
  - Alanine aminotransferase increased [Unknown]
  - Stomatitis [Unknown]
